FAERS Safety Report 5514454-0 (Version None)
Quarter: 2007Q4

REPORT INFORMATION
  Report Type: 
  Country: None (occurrence: None)
  Receive Date: 20071113
  Receipt Date: 20070529
  Transmission Date: 20080405
  Serious: No
  Sender: FDA-Public Use
  Company Number: A0653245A

PATIENT
  Age: 82 Year
  Sex: Female

DRUGS (10)
  1. COREG [Suspect]
     Indication: HYPERTENSION
     Dosage: 6.25MG THREE TIMES PER DAY
     Route: 048
     Dates: start: 20070403
  2. CALCIUM SUPPLEMENTS [Concomitant]
  3. ALTACE [Concomitant]
  4. HYDROCHLOROTHIAZIDE [Concomitant]
  5. ZOCOR [Concomitant]
  6. TRANXENE [Concomitant]
  7. VENTOLIN [Concomitant]
  8. FLOVENT [Concomitant]
  9. ALBUTEROL [Concomitant]
  10. BONIVA [Concomitant]

REACTIONS (1)
  - THERAPEUTIC RESPONSE UNEXPECTED [None]
